FAERS Safety Report 5728192-2 (Version None)
Quarter: 2008Q2

REPORT INFORMATION
  Report Type: 
  Country: None (occurrence: None)
  Receive Date: 20080501
  Receipt Date: 20080416
  Transmission Date: 20081010
  Serious: Yes (Other)
  Sender: FDA-Public Use
  Company Number: B0518273A

PATIENT
  Age: 46 Year
  Sex: Male

DRUGS (9)
  1. ABACAVIR SULFATE [Suspect]
     Indication: ANTIRETROVIRAL THERAPY
     Dates: start: 20010701
  2. ZIDOVUDINE [Suspect]
     Indication: ANTIRETROVIRAL THERAPY
  3. LAMIVUDINE [Suspect]
     Indication: ANTIRETROVIRAL THERAPY
     Dates: start: 19950101
  4. RITONAVIR (FORMULATION UNKNOWN) (RITONAVIR) [Suspect]
     Indication: ANTIRETROVIRAL THERAPY
     Dosage: 100 MG/ TWICE PER DAY/
     Dates: start: 20010701
  5. INDINIVIR SULFATE [Suspect]
     Indication: ANTIRETROVIRAL THERAPY
     Dates: start: 19950101
  6. STAVUDINE [Suspect]
     Indication: ANTIRETROVIRAL THERAPY
     Dates: start: 19950101
  7. EFAVIRENZ [Suspect]
     Indication: ANTIRETROVIRAL THERAPY
  8. DIDANOSINE [Suspect]
     Indication: ANTIRETROVIRAL THERAPY
  9. TENOFOVIR DISOPROXIL FUMARATE [Suspect]
     Indication: ANTIRETROVIRAL THERAPY

REACTIONS (5)
  - ALANINE AMINOTRANSFERASE INCREASED [None]
  - ANAEMIA [None]
  - ASPARTATE AMINOTRANSFERASE INCREASED [None]
  - DRUG HYPERSENSITIVITY [None]
  - HEPATIC STEATOSIS [None]
